FAERS Safety Report 11310394 (Version 1)
Quarter: 2015Q3

REPORT INFORMATION
  Report Type: Report from Study
  Country: US (occurrence: US)
  Receive Date: 20150724
  Receipt Date: 20150724
  Transmission Date: 20151125
  Serious: Yes (Other)
  Sender: FDA-Public Use
  Company Number: US-ABBVIE-15K-163-1371393-00

PATIENT
  Sex: Female
  Weight: 95.34 kg

DRUGS (11)
  1. SULFASALAZINE. [Concomitant]
     Active Substance: SULFASALAZINE
     Indication: RHEUMATOID ARTHRITIS
  2. GLYBURIDE. [Concomitant]
     Active Substance: GLYBURIDE
     Indication: DIABETES MELLITUS
  3. ASPIRIN. [Concomitant]
     Active Substance: ASPIRIN
     Indication: ANTICOAGULANT THERAPY
  4. HUMIRA [Suspect]
     Active Substance: ADALIMUMAB
     Route: 058
     Dates: start: 201505
  5. ENALAPRIL + HIDROCLOROTIAZIDA [Concomitant]
     Indication: HYPERTENSION
  6. FENOFIBRATE. [Concomitant]
     Active Substance: FENOFIBRATE
     Indication: BLOOD CHOLESTEROL INCREASED
  7. HUMIRA [Suspect]
     Active Substance: ADALIMUMAB
     Indication: RHEUMATOID ARTHRITIS
     Route: 058
     Dates: start: 2015, end: 201504
  8. GABAPENTIN. [Concomitant]
     Active Substance: GABAPENTIN
     Indication: RHEUMATOID ARTHRITIS
  9. GABAPENTIN. [Concomitant]
     Active Substance: GABAPENTIN
     Indication: OSTEOARTHRITIS
  10. FUROSEMIDE. [Concomitant]
     Active Substance: FUROSEMIDE
     Indication: SWELLING
  11. DICYCLOMINE [Concomitant]
     Active Substance: DICYCLOMINE HYDROCHLORIDE
     Indication: GASTRIC DISORDER

REACTIONS (3)
  - Mass [Not Recovered/Not Resolved]
  - Carpal tunnel syndrome [Recovering/Resolving]
  - Trigger finger [Not Recovered/Not Resolved]

NARRATIVE: CASE EVENT DATE: 2015
